FAERS Safety Report 9282404 (Version 1)
Quarter: 2013Q2

REPORT INFORMATION
  Report Type: Spontaneous
  Country: US (occurrence: None)
  Receive Date: 20130509
  Receipt Date: 20130509
  Transmission Date: 20140414
  Serious: Yes (Other)
  Sender: FDA-Public Use
  Company Number: None

PATIENT
  Age: 45 Year
  Sex: Female

DRUGS (6)
  1. STIVARGA [Suspect]
     Indication: COLON CANCER
     Route: 048
     Dates: start: 20130115, end: 201303
  2. MVI [Concomitant]
  3. CELEXA [Concomitant]
  4. OLANZEPINE [Concomitant]
  5. TOPAMAX [Concomitant]
  6. LORAZEPAM [Concomitant]

REACTIONS (6)
  - Stomatitis [None]
  - Pain [None]
  - Erythema [None]
  - Diarrhoea [None]
  - Hepatic enzyme increased [None]
  - Electrolyte imbalance [None]
